FAERS Safety Report 10444875 (Version 3)
Quarter: 2015Q2

REPORT INFORMATION
  Report Type: Spontaneous
  Country: US (occurrence: US)
  Receive Date: 20140910
  Receipt Date: 20150402
  Transmission Date: 20150821
  Serious: Yes (Hospitalization, Disabling, Other)
  Sender: FDA-Public Use
  Company Number: US-009507513-1409USA004477

PATIENT
  Sex: Female
  Weight: 96.15 kg

DRUGS (3)
  1. JANUVIA [Suspect]
     Active Substance: SITAGLIPTIN PHOSPHATE
     Indication: TYPE 2 DIABETES MELLITUS
     Dosage: 50 MG, QD
     Route: 048
     Dates: start: 20121119, end: 20131028
  2. METHADONE HYDROCHLORIDE. [Concomitant]
     Active Substance: METHADONE HYDROCHLORIDE
     Indication: DRUG WITHDRAWAL MAINTENANCE THERAPY
     Dosage: 130 MG, QD
     Route: 048
     Dates: start: 1991
  3. OMEPRAZOLE. [Concomitant]
     Active Substance: OMEPRAZOLE
     Indication: GASTROOESOPHAGEAL REFLUX DISEASE
     Dosage: 40 MG, QD
     Route: 048
     Dates: start: 2011

REACTIONS (20)
  - Hepatic vascular thrombosis [Unknown]
  - Diarrhoea [Unknown]
  - Pancreatic necrosis [Unknown]
  - Flatulence [Unknown]
  - Vulvovaginitis [Recovered/Resolved]
  - Bile duct stent insertion [Unknown]
  - Vaginal infection [Recovered/Resolved]
  - Faeces pale [Unknown]
  - Pancreatic carcinoma metastatic [Not Recovered/Not Resolved]
  - Lymphadenopathy [Unknown]
  - Scar [Unknown]
  - Constipation [Unknown]
  - Metastases to liver [Unknown]
  - Diabetes mellitus inadequate control [Unknown]
  - Abdominal pain upper [Unknown]
  - Drug hypersensitivity [Unknown]
  - Skin irritation [Unknown]
  - Hypertension [Unknown]
  - Abdominal distension [Unknown]
  - Blister [Unknown]

NARRATIVE: CASE EVENT DATE: 2013
